FAERS Safety Report 6159857-9 (Version None)
Quarter: 2009Q2

REPORT INFORMATION
  Report Type: 
  Country: None (occurrence: None)
  Receive Date: 20090415
  Receipt Date: 20090331
  Transmission Date: 20091009
  Serious: Yes (Hospitalization)
  Sender: FDA-Public Use
  Company Number: PHO-2008-059 FUP1

PATIENT
  Age: 68 Year
  Sex: Female

DRUGS (2)
  1. PHOTOFRIN [Suspect]
     Indication: BILE DUCT CANCER
     Dosage: 186J/CM; IV, LIGHT, 1 ADMINISTRATION
     Route: 042
     Dates: start: 20081021, end: 20081023
  2. PHOTOFRIN [Suspect]
     Indication: BILE DUCT CANCER
     Dosage: 186J/CM; IV, LIGHT, 1 ADMINISTRATION
     Route: 042
     Dates: end: 20081023

REACTIONS (5)
  - BILIARY SEPSIS [None]
  - DEVICE OCCLUSION [None]
  - ESCHERICHIA SEPSIS [None]
  - MALAISE [None]
  - URINARY INCONTINENCE [None]
